FAERS Safety Report 10934512 (Version 3)
Quarter: 2015Q3

REPORT INFORMATION
  Report Type: Spontaneous
  Country: US (occurrence: US)
  Receive Date: 20150320
  Receipt Date: 20150910
  Transmission Date: 20151125
  Serious: No
  Sender: FDA-Public Use
  Company Number: US-PFIZER INC-2015094187

PATIENT
  Age: 71 Year
  Sex: Female
  Weight: 80 kg

DRUGS (8)
  1. ADVIL [Suspect]
     Active Substance: IBUPROFEN
     Indication: PAIN
     Dosage: 400 MG, 2X/DAY
     Dates: start: 2013, end: 2014
  2. NATURE THROID THYROID [Concomitant]
     Indication: AUTOIMMUNE THYROIDITIS
     Dosage: 81.5 MG, DAILY (EACH MORNING)
     Dates: start: 2012
  3. ADVIL [Suspect]
     Active Substance: IBUPROFEN
     Indication: RHEUMATOID ARTHRITIS
  4. CLONAZEPAM. [Concomitant]
     Active Substance: CLONAZEPAM
     Indication: SEDATIVE THERAPY
     Dosage: 1.0 MG, DAILY(TAKEN WHEN GO TO BED)
     Dates: start: 2011
  5. BUPROPION HCL [Concomitant]
     Active Substance: BUPROPION HYDROCHLORIDE
     Indication: DEPRESSION
     Dosage: 300 MG, UNK
     Dates: start: 2011
  6. ARMOUR THYROID [Concomitant]
     Active Substance: THYROID, PORCINE\THYROID, UNSPECIFIED
     Indication: AUTOIMMUNE THYROIDITIS
     Dosage: UNK
     Dates: start: 2011
  7. NATURE-THROID [Concomitant]
     Active Substance: THYROID, PORCINE
     Indication: AUTOIMMUNE THYROIDITIS
     Dosage: UNK
     Dates: start: 2012
  8. ESCITALOPRAM [Concomitant]
     Active Substance: ESCITALOPRAM OXALATE
     Indication: DEPRESSION
     Dosage: 20 MG, DAILY
     Dates: start: 2011

REACTIONS (2)
  - Drug ineffective [Recovered/Resolved]
  - Renal disorder [Unknown]

NARRATIVE: CASE EVENT DATE: 2013
